FAERS Safety Report 13507079 (Version 1)
Quarter: 2017Q2

REPORT INFORMATION
  Report Type: Spontaneous
  Country: US (occurrence: US)
  Receive Date: 20170502
  Receipt Date: 20170502
  Transmission Date: 20170830
  Serious: Yes (Disabling)
  Sender: FDA-Public Use
  Company Number: None

PATIENT
  Age: 56 Year
  Sex: Female
  Weight: 60.75 kg

DRUGS (7)
  1. AMALODIPINE [Concomitant]
  2. CRESTOR [Concomitant]
     Active Substance: ROSUVASTATIN CALCIUM
  3. METOPEROLOL [Concomitant]
  4. SPONDALACTON [Concomitant]
  5. ACIPHEX [Concomitant]
     Active Substance: RABEPRAZOLE SODIUM
  6. ASPIRIN. [Concomitant]
     Active Substance: ASPIRIN
  7. JANUMET XR [Suspect]
     Active Substance: METFORMIN HYDROCHLORIDE\SITAGLIPTIN PHOSPHATE
     Indication: TYPE 2 DIABETES MELLITUS
     Dosage: ?          QUANTITY:60 TABLET(S);?
     Route: 048
     Dates: start: 20150805, end: 20170312

REACTIONS (9)
  - Vomiting [None]
  - Starvation [None]
  - Blood glucose decreased [None]
  - Dysgeusia [None]
  - Abdominal pain [None]
  - Abdominal distension [None]
  - Weight decreased [None]
  - Eructation [None]
  - Impaired gastric emptying [None]

NARRATIVE: CASE EVENT DATE: 20161220
